APPROVED DRUG PRODUCT: IPRATROPIUM BROMIDE
Active Ingredient: IPRATROPIUM BROMIDE
Strength: 0.02%
Dosage Form/Route: SOLUTION;INHALATION
Application: A075313 | Product #001
Applicant: TEVA PHARMACEUTICALS USA
Approved: Feb 7, 2000 | RLD: No | RS: No | Type: DISCN